FAERS Safety Report 8317113-4 (Version None)
Quarter: 2012Q2

REPORT INFORMATION
  Report Type: 
  Country: None (occurrence: None)
  Receive Date: 20120425
  Receipt Date: 20120413
  Transmission Date: 20120825
  Serious: Yes (Life-Threatening, Hospitalization)
  Sender: FDA-Public Use
  Company Number: AUR-APL-2012-01841

PATIENT
  Age: 94 Year
  Sex: Male

DRUGS (19)
  1. CLARITHROMYCIN [Concomitant]
  2. LACTULOSE [Concomitant]
  3. ENOXAPARIN SODIUM [Concomitant]
  4. PHENYTOIN [Concomitant]
  5. BENZYLPENICILLIN (BENZYLPENICILLIN) [Concomitant]
  6. HYDROCORTONE [Concomitant]
  7. IPRATROPIUM (IPROTROPIUM) [Concomitant]
  8. FLUDROCORTISONE ACETATE [Concomitant]
  9. GENTAMICIN [Concomitant]
  10. OMEPRAZOLE [Concomitant]
  11. ACETAMINOPHEN [Concomitant]
  12. PHOSPHATE SANDOZ (PHOSPHATE SANDOZ) [Concomitant]
  13. ALBUTEROL SULFATE [Concomitant]
  14. PIPERACILLIN AND TAZOBACTAM [Suspect]
     Indication: LOWER RESPIRATORY TRACT INFECTION
     Dosage: 13.5 GM (4.5 GM, 1 IN 8 HR), INTRAVENOUS
     Route: 042
     Dates: start: 20120320, end: 20120326
  15. PIPERACILLIN AND TAZOBACTAM [Suspect]
     Indication: SEPSIS
     Dosage: 13.5 GM (4.5 GM, 1 IN 8 HR), INTRAVENOUS
     Route: 042
     Dates: start: 20120320, end: 20120326
  16. CALCCHEW D3 (LEKOVIT CA) [Concomitant]
  17. FUROSEMIDE [Concomitant]
  18. LANSOPRAZOLE [Concomitant]
  19. LOPERAMIDE [Concomitant]

REACTIONS (3)
  - NEUTROPENIA [None]
  - PLATELET COUNT DECREASED [None]
  - LEUKOPENIA [None]
